FAERS Safety Report 8882852 (Version 2)
Quarter: 2012Q4

REPORT INFORMATION
  Report Type: 
  Country: US (occurrence: US)
  Receive Date: 20121103
  Receipt Date: 20121221
  Transmission Date: 20130627
  Serious: Yes (Other)
  Sender: FDA-Public Use
  Company Number: US-US-EMD SERONO, INC.-7171150

PATIENT
  Age: 39 Year
  Sex: Female
  Weight: 91 kg

DRUGS (7)
  1. REBIF [Suspect]
     Indication: MULTIPLE SCLEROSIS
     Route: 058
     Dates: start: 20111217, end: 20120913
  2. REBIF [Suspect]
     Route: 058
     Dates: start: 2012
  3. HYDROCHLOROTHIAZIDE [Concomitant]
     Indication: HYPERTENSION
  4. COLLAGEN [Concomitant]
     Indication: URETHRAL DISORDER
  5. PHENERGAN [Concomitant]
     Indication: NAUSEA
  6. GABAPENTIN [Concomitant]
     Indication: PRODUCT USED FOR UNKNOWN INDICATION
  7. BACLOFEN [Concomitant]
     Indication: PRODUCT USED FOR UNKNOWN INDICATION

REACTIONS (3)
  - Bladder mass [Recovered/Resolved]
  - Bone loss [Not Recovered/Not Resolved]
  - Bronchitis [Recovering/Resolving]
